FAERS Safety Report 10862766 (Version 1)
Quarter: 2015Q1

REPORT INFORMATION
  Report Type: Spontaneous
  Country: US (occurrence: None)
  Receive Date: 20150219
  Receipt Date: 20150219
  Transmission Date: 20150721
  Serious: Yes (Hospitalization)
  Sender: FDA-Public Use
  Company Number: DEP_02495_2015

PATIENT
  Age: 82 Year
  Sex: Female
  Weight: 104.78 kg

DRUGS (14)
  1. GRALISE [Suspect]
     Active Substance: GABAPENTIN
     Indication: OFF LABEL USE
     Dosage: SAMPLE PACK, TITRATED UP TO 1500 MG, ONCE DAILY, WITH THE EVENING MEAL ORAL
     Route: 048
     Dates: start: 20150121
  2. VITAMIN B12 [Concomitant]
     Active Substance: CYANOCOBALAMIN
  3. FOLIC ACID. [Concomitant]
     Active Substance: FOLIC ACID
  4. AMLODIPINE [Concomitant]
     Active Substance: AMLODIPINE BESYLATE
  5. MULTIVITAMINS, COMBINATIONS [Concomitant]
  6. IRBESARTAN. [Concomitant]
     Active Substance: IRBESARTAN
  7. TRADJENTA [Concomitant]
     Active Substance: LINAGLIPTIN
  8. LEVEMIR [Concomitant]
     Active Substance: INSULIN DETEMIR
  9. FUROSEMIDE. [Concomitant]
     Active Substance: FUROSEMIDE
  10. GRALISE [Suspect]
     Active Substance: GABAPENTIN
     Indication: RESTLESS LEGS SYNDROME
     Dosage: SAMPLE PACK, TITRATED UP TO 1500 MG, ONCE DAILY, WITH THE EVENING MEAL ORAL
     Route: 048
     Dates: start: 20150121
  11. FERROUS SULFATE [Concomitant]
     Active Substance: FERROUS SULFATE\FERROUS SULFATE, DRIED
  12. ASCORBIC ACID. [Concomitant]
     Active Substance: ASCORBIC ACID
  13. PRAVASTATIN SODIUM. [Concomitant]
     Active Substance: PRAVASTATIN SODIUM
  14. OXYCODONE [Concomitant]
     Active Substance: OXYCODONE

REACTIONS (3)
  - Feeling abnormal [None]
  - Logorrhoea [None]
  - Balance disorder [None]

NARRATIVE: CASE EVENT DATE: 201501
